FAERS Safety Report 4906056-1 (Version None)
Quarter: 2006Q1

REPORT INFORMATION
  Report Type: 
  Country: None (occurrence: None)
  Receive Date: 20060207
  Receipt Date: 20060126
  Transmission Date: 20060701
  Serious: Yes (Hospitalization)
  Sender: FDA-Public Use
  Company Number: GXKR2006NL00654

PATIENT
  Age: 53 Year
  Sex: Male

DRUGS (4)
  1. METOPROLOL TARTRATE [Suspect]
     Dosage: 50 MG, BID, ORAL
     Route: 048
     Dates: start: 20030101, end: 20050101
  2. ACENOCOUMAROL (ACENOCOUMAROL) TABLET [Concomitant]
  3. LIPITOR [Concomitant]
  4. ACUPRIL (QUINAPRIL) TABLET [Concomitant]

REACTIONS (1)
  - DELIRIUM [None]
